FAERS Safety Report 17829968 (Version 1)
Quarter: 2020Q2

REPORT INFORMATION
  Report Type: Spontaneous
  Country: US (occurrence: US)
  Receive Date: 20200527
  Receipt Date: 20200527
  Transmission Date: 20200714
  Serious: Yes (Other)
  Sender: FDA-Public Use
  Company Number: US-AMERICAN REGENT INC-2020001071

PATIENT

DRUGS (2)
  1. MANGANESE SULFATE INJECTION, USP (6410-25) [Suspect]
     Active Substance: MANGANESE SULFATE
     Indication: PARENTERAL NUTRITION
     Dosage: TOTAL PARENTERAL MANGANESE FROM BIRTH TO MR IMAGING WAS 766 MICROGRAMS
     Route: 051
  2. MULTITRACE-4 NEONATAL [Suspect]
     Active Substance: CHROMIC CHLORIDE\CUPRIC SULFATE\MANGANESE SULFATE\ZINC SULFATE HEPTAHYDRATE
     Indication: PARENTERAL NUTRITION
     Dosage: TOTAL PARENTERAL MANGANESE FROM BIRTH TO MR IMAGING WAS 766 MICROGRAMS
     Route: 051

REACTIONS (1)
  - Magnetic resonance imaging brain abnormal [Unknown]
